FAERS Safety Report 26110900 (Version 1)
Quarter: 2025Q4

REPORT INFORMATION
  Report Type: Spontaneous
  Country: US (occurrence: US)
  Receive Date: 20251202
  Receipt Date: 20251202
  Transmission Date: 20260117
  Serious: No
  Sender: SERVIER
  Company Number: US-SERVIER-S25016995

PATIENT

DRUGS (4)
  1. ASPARLAS [Suspect]
     Active Substance: CALASPARGASE PEGOL-MKNL
     Indication: Product used for unknown indication
     Dosage: UNK
     Route: 042
     Dates: start: 2025, end: 2025
  2. HYDROCORTISONE [Concomitant]
     Active Substance: HYDROCORTISONE
     Indication: Premedication
     Dosage: UNK
     Route: 065
  3. DIPHENHYDRAMINE [Concomitant]
     Active Substance: DIPHENHYDRAMINE
     Indication: Premedication
     Dosage: UNK
     Route: 065
  4. FAMOTIDINE [Concomitant]
     Active Substance: FAMOTIDINE
     Indication: Premedication
     Dosage: UNK
     Route: 065

REACTIONS (10)
  - Abdominal discomfort [Recovered/Resolved]
  - Abdominal pain [Recovered/Resolved]
  - Anxiety [Recovered/Resolved]
  - Hypertension [Recovered/Resolved]
  - Hyperhidrosis [Recovered/Resolved]
  - Vomiting [Recovered/Resolved]
  - Oxygen saturation decreased [Recovered/Resolved]
  - Drug level decreased [Unknown]
  - Infusion related reaction [Recovered/Resolved]
  - Infusion related reaction [Recovered/Resolved]

NARRATIVE: CASE EVENT DATE: 20250101
